FAERS Safety Report 22152983 (Version 2)
Quarter: 2023Q1

REPORT INFORMATION
  Report Type: Spontaneous
  Country: US (occurrence: US)
  Receive Date: 20230329
  Receipt Date: 20230330
  Transmission Date: 20230417
  Serious: No
  Sender: FDA-Public Use
  Company Number: US-002147023-NVSC2023US072227

PATIENT
  Sex: Female

DRUGS (1)
  1. MEKINIST [Suspect]
     Active Substance: TRAMETINIB DIMETHYL SULFOXIDE
     Indication: Ovarian cancer
     Dosage: 2 MG, QD
     Route: 065
     Dates: start: 202301

REACTIONS (7)
  - Nasal dryness [Unknown]
  - Epistaxis [Unknown]
  - Gingival bleeding [Unknown]
  - Dry mouth [Unknown]
  - Dry skin [Unknown]
  - Peripheral swelling [Unknown]
  - Rash [Unknown]
